FAERS Safety Report 5799972-2 (Version None)
Quarter: 2008Q3

REPORT INFORMATION
  Report Type: 
  Country: None (occurrence: None)
  Receive Date: 20080701
  Receipt Date: 20080619
  Transmission Date: 20090109
  Serious: Yes (Hospitalization)
  Sender: FDA-Public Use
  Company Number: 2006BI007972

PATIENT
  Age: 54 Year
  Sex: Female

DRUGS (1)
  1. AVONEX [Suspect]
     Indication: MULTIPLE SCLEROSIS
     Dosage: 30 UG QW IM
     Route: 030

REACTIONS (6)
  - BLISTER [None]
  - DECUBITUS ULCER [None]
  - FALL [None]
  - HYPOAESTHESIA [None]
  - IMPAIRED HEALING [None]
  - SKIN DISCOLOURATION [None]
